FAERS Safety Report 6906936-1 (Version None)
Quarter: 2010Q3

REPORT INFORMATION
  Report Type: 
  Country: None (occurrence: None)
  Receive Date: 20100804
  Receipt Date: 20100519
  Transmission Date: 20110219
  Serious: Yes (Hospitalization, Other)
  Sender: FDA-Public Use
  Company Number: PHHY2010BR32931

PATIENT
  Age: 28 Year
  Sex: Female

DRUGS (5)
  1. CLOFAZIMINE [Suspect]
     Indication: LEPROSY
  2. RIFAMPICIN [Suspect]
     Indication: LEPROSY
  3. DAPSONE [Suspect]
     Indication: LEPROSY
  4. BENZATHINE BENZYLPENICILLIN [Concomitant]
  5. I.V. SOLUTIONS [Concomitant]

REACTIONS (23)
  - ABDOMINAL PAIN LOWER [None]
  - ABDOMINAL PAIN UPPER [None]
  - AGRANULOCYTOSIS [None]
  - BLOOD FIBRINOGEN INCREASED [None]
  - BONE MARROW FAILURE [None]
  - CARDIAC MURMUR [None]
  - CHILLS [None]
  - DEHYDRATION [None]
  - DYSPHAGIA [None]
  - GENERAL PHYSICAL HEALTH DETERIORATION [None]
  - HAEMOLYTIC ANAEMIA [None]
  - HEADACHE [None]
  - HEART RATE INCREASED [None]
  - HYPOTONIA [None]
  - LUNG DISORDER [None]
  - MARROW HYPERPLASIA [None]
  - NEUTROPENIA [None]
  - OROPHARYNGEAL PAIN [None]
  - OROPHARYNGEAL PLAQUE [None]
  - PALLOR [None]
  - PYREXIA [None]
  - SYNCOPE [None]
  - TONSILLAR HYPERTROPHY [None]
